FAERS Safety Report 6431110-5 (Version None)
Quarter: 2009Q4

REPORT INFORMATION
  Report Type: 
  Country: None (occurrence: None)
  Receive Date: 20091105
  Receipt Date: 20091105
  Transmission Date: 20100525
  Serious: No
  Sender: FDA-Public Use
  Company Number: None

PATIENT
  Age: 60 Year
  Sex: Male
  Weight: 123 kg

DRUGS (1)
  1. GABAPENTIN [Suspect]
     Indication: ANXIETY
     Dates: start: 20010701, end: 20080521

REACTIONS (1)
  - TINNITUS [None]
